FAERS Safety Report 22869571 (Version 4)
Quarter: 2023Q4

REPORT INFORMATION
  Report Type: Spontaneous
  Country: US (occurrence: US)
  Receive Date: 20230828
  Receipt Date: 20231003
  Transmission Date: 20240110
  Serious: Yes (Other)
  Sender: FDA-Public Use
  Company Number: US-SA-SAC20230821000448

PATIENT
  Age: 10 Year
  Sex: Male

DRUGS (2)
  1. DUPIXENT [Suspect]
     Active Substance: DUPILUMAB
     Indication: Eczema
     Dosage: 400 MG, 1X
     Route: 058
     Dates: start: 20230621, end: 20230621
  2. DUPIXENT [Suspect]
     Active Substance: DUPILUMAB
     Dosage: 200 MG, QOW
     Route: 058
     Dates: start: 202307

REACTIONS (9)
  - Lyme disease [Unknown]
  - Skin weeping [Unknown]
  - Myalgia [Unknown]
  - Pruritus [Unknown]
  - Therapeutic response shortened [Unknown]
  - Arthralgia [Unknown]
  - Dry eye [Unknown]
  - Eczema [Unknown]
  - Rash papular [Unknown]

NARRATIVE: CASE EVENT DATE: 20230101
